FAERS Safety Report 8981569 (Version 1)
Quarter: 2012Q4

REPORT INFORMATION
  Report Type: 
  Country: US (occurrence: US)
  Receive Date: 20121212
  Receipt Date: 20121212
  Transmission Date: 20130627
  Serious: Yes (Death, Hospitalization)
  Sender: FDA-Public Use
  Company Number: US-ASTELLAS-1113921

PATIENT
  Age: 78 Year
  Sex: Female

DRUGS (2)
  1. TARCEVA [Suspect]
     Indication: LUNG NEOPLASM MALIGNANT
     Route: 048
     Dates: start: 20080425, end: 20080519
  2. TARCEVA [Suspect]
     Indication: BRAIN NEOPLASM MALIGNANT

REACTIONS (6)
  - Malaise [Unknown]
  - Nausea [Unknown]
  - Vomiting [Unknown]
  - Diarrhoea [Unknown]
  - Death [Fatal]
  - Drug intolerance [Unknown]
